FAERS Safety Report 9528362 (Version 2)
Quarter: 2013Q3

REPORT INFORMATION
  Report Type: Spontaneous
  Country: AR (occurrence: AR)
  Receive Date: 20130917
  Receipt Date: 20130917
  Transmission Date: 20140515
  Serious: Yes (Other)
  Sender: FDA-Public Use
  Company Number: AR-ABBVIE-13P-007-1132495-00

PATIENT
  Age: 54 Year
  Sex: Male
  Weight: 86 kg

DRUGS (4)
  1. HUMIRA [Suspect]
     Indication: RHEUMATOID ARTHRITIS
     Dates: start: 201302
  2. METHOTREXATE [Concomitant]
  3. FOLIC ACID [Concomitant]
  4. PREDNISONE [Concomitant]

REACTIONS (7)
  - Meningitis [Unknown]
  - Meningitis tuberculous [Unknown]
  - Migraine [Unknown]
  - Night sweats [Recovered/Resolved]
  - CSF glucose decreased [Unknown]
  - Pleocytosis [Unknown]
  - Headache [Recovered/Resolved]
